FAERS Safety Report 12253987 (Version 1)
Quarter: 2016Q2

REPORT INFORMATION
  Report Type: Spontaneous
  Country: FR (occurrence: FR)
  Receive Date: 20160411
  Receipt Date: 20160411
  Transmission Date: 20160815
  Serious: Yes (Other)
  Sender: FDA-Public Use
  Company Number: FR-ARIAD PHARMACEUTICALS, INC-2016FR006320

PATIENT
  Age: 67 Year
  Sex: Female

DRUGS (1)
  1. ICLUSIG [Suspect]
     Active Substance: PONATINIB
     Indication: CHRONIC MYELOID LEUKAEMIA
     Dosage: 45 MG, UNK
     Route: 048
     Dates: start: 20150119

REACTIONS (3)
  - Treatment failure [Not Recovered/Not Resolved]
  - Haematotoxicity [Unknown]
  - Transplant [Recovered/Resolved]

NARRATIVE: CASE EVENT DATE: 20151119
